FAERS Safety Report 8816503 (Version 1)
Quarter: 2012Q4

REPORT INFORMATION
  Report Type: 
  Country: DE (occurrence: None)
  Receive Date: 20120927
  Receipt Date: 20120927
  Transmission Date: 20130627
  Serious: Yes (Other)
  Sender: FDA-Public Use
  Company Number: AUR-APL-2012-04071

PATIENT
  Sex: Female
  Weight: 71 kg

DRUGS (3)
  1. SERTRALINE (SERTRALINE) (SERTRALINE) [Suspect]
     Indication: DEPRESSION
     Route: 048
     Dates: start: 20110410, end: 20120102
  2. FOLIC ACID [Concomitant]
  3. CYTOTEC (MISOPROSTOL) [Concomitant]

REACTIONS (5)
  - Exposure during pregnancy [None]
  - Induced labour [None]
  - Foetal death [None]
  - Placental insufficiency [None]
  - Umbilical artery hypoplasia [None]
